FAERS Safety Report 9159925 (Version 2)
Quarter: 2013Q2

REPORT INFORMATION
  Report Type: Spontaneous
  Country: US (occurrence: None)
  Receive Date: 20130212
  Receipt Date: 20130416
  Transmission Date: 20140414
  Serious: Yes (Other)
  Sender: FDA-Public Use
  Company Number: 1206-342

PATIENT
  Age: 97 Year
  Sex: Female
  Weight: 61.24 kg

DRUGS (2)
  1. EYLEA [Suspect]
     Indication: MACULAR DEGENERATION
     Dosage: 2 MG, 1 IN 1 M, INTRAVIREAL
     Dates: start: 20120530
  2. LIPITOR (ATORVASTATIN CALCIUM) [Concomitant]

REACTIONS (2)
  - Bronchitis [None]
  - Atrial fibrillation [None]
